FAERS Safety Report 5423284-X (Version None)
Quarter: 2007Q3

REPORT INFORMATION
  Report Type: 
  Country: None (occurrence: None)
  Receive Date: 20070823
  Receipt Date: 20070815
  Transmission Date: 20080115
  Serious: Yes (Other)
  Sender: FDA-Public Use
  Company Number: PHBS2007BR13883

PATIENT
  Sex: Male

DRUGS (1)
  1. FORASEQ [Suspect]
     Dosage: UNK, BID

REACTIONS (2)
  - HAEMOPTYSIS [None]
  - PALATAL DISORDER [None]
